FAERS Safety Report 10628569 (Version 2)
Quarter: 2014Q4

REPORT INFORMATION
  Report Type: Spontaneous
  Country: US (occurrence: US)
  Receive Date: 20141205
  Receipt Date: 20141205
  Transmission Date: 20150529
  Serious: No
  Sender: FDA-Public Use
  Company Number: US-BRISTOL-MYERS SQUIBB COMPANY-20386967

PATIENT
  Age: 58 Year
  Sex: Female

DRUGS (5)
  1. KOMBIGLYZE XR [Suspect]
     Active Substance: METFORMIN HYDROCHLORIDE\SAXAGLIPTIN HYDROCHLORIDE
     Dosage: KOMBIGLYZE XR 5/1000MG TABS?1 DF=5 MG/10OO MG
  2. PRAVASTATIN SODIUM. [Concomitant]
     Active Substance: PRAVASTATIN SODIUM
  3. CITALOPRAM [Concomitant]
     Active Substance: CITALOPRAM HYDROBROMIDE
  4. CETIRIZINE HCL [Concomitant]
     Active Substance: CETIRIZINE HYDROCHLORIDE
  5. LEVEMIR [Concomitant]
     Active Substance: INSULIN DETEMIR
     Dosage: LEVEMIR FLEX PEN

REACTIONS (1)
  - Medication residue present [Unknown]
